FAERS Safety Report 14273377 (Version 1)
Quarter: 2017Q4

REPORT INFORMATION
  Report Type: Spontaneous
  Country: KR (occurrence: KR)
  Receive Date: 20171211
  Receipt Date: 20171211
  Transmission Date: 20180321
  Serious: Yes (Death, Other)
  Sender: FDA-Public Use
  Company Number: KR-009507513-1712KOR002478

PATIENT
  Age: 57 Year
  Sex: Male

DRUGS (1)
  1. KEYTRUDA [Suspect]
     Active Substance: PEMBROLIZUMAB
     Indication: LUNG ADENOCARCINOMA STAGE IV
     Dosage: 2 VIALS, UNK
     Dates: start: 20171117, end: 20171117

REACTIONS (3)
  - Circulatory collapse [Unknown]
  - Urticaria [Unknown]
  - Death [Fatal]

NARRATIVE: CASE EVENT DATE: 20171119
